FAERS Safety Report 12110329 (Version 1)
Quarter: 2016Q1

REPORT INFORMATION
  Report Type: Spontaneous
  Country: US (occurrence: None)
  Receive Date: 20160223
  Receipt Date: 20160223
  Transmission Date: 20160526
  Serious: Yes (Life-Threatening, Hospitalization, Disabling, Other)
  Sender: FDA-Public Use
  Company Number: None

PATIENT
  Age: 34 Year
  Sex: Female
  Weight: 73.4 kg

DRUGS (1)
  1. CLINDAMYCIN [Suspect]
     Active Substance: CLINDAMYCIN\CLINDAMYCIN PHOSPHATE
     Indication: OTITIS MEDIA
     Dates: start: 20160205, end: 20160214

REACTIONS (7)
  - Jaundice [None]
  - Vomiting [None]
  - Chromaturia [None]
  - Abdominal pain upper [None]
  - Nausea [None]
  - Drug-induced liver injury [None]
  - Flank pain [None]

NARRATIVE: CASE EVENT DATE: 20160219
